FAERS Safety Report 8744248 (Version 3)
Quarter: 2012Q4

REPORT INFORMATION
  Report Type: 
  Country: US (occurrence: US)
  Receive Date: 20120824
  Receipt Date: 20120917
  Transmission Date: 20130627
  Serious: Yes (Other)
  Sender: FDA-Public Use
  Company Number: CHPA2012US018411

PATIENT
  Sex: Female

DRUGS (1)
  1. MYOFLEX [Suspect]
     Indication: BACK PAIN
     Dosage: 2 DF, PRN
     Route: 061
     Dates: start: 2006

REACTIONS (5)
  - Intervertebral disc protrusion [Not Recovered/Not Resolved]
  - Intervertebral disc degeneration [Not Recovered/Not Resolved]
  - Back pain [Unknown]
  - Foot fracture [Not Recovered/Not Resolved]
  - Off label use [Unknown]
